FAERS Safety Report 13998391 (Version 3)
Quarter: 2017Q4

REPORT INFORMATION
  Report Type: Spontaneous
  Country: CN (occurrence: CN)
  Receive Date: 20170922
  Receipt Date: 20171017
  Transmission Date: 20180321
  Serious: Yes (Hospitalization, Other)
  Sender: FDA-Public Use
  Company Number: CN-JNJFOC-20170913786

PATIENT
  Age: 67 Year
  Sex: Female

DRUGS (6)
  1. DUROGESIC [Suspect]
     Active Substance: FENTANYL
     Indication: PAIN
     Dosage: MID AUG
     Route: 062
     Dates: start: 201708
  2. DUROGESIC [Suspect]
     Active Substance: FENTANYL
     Indication: PAIN
     Route: 062
     Dates: start: 201709
  3. IRESSA [Concomitant]
     Active Substance: GEFITINIB
     Route: 065
     Dates: start: 20170820
  4. ULTRACET [Concomitant]
     Active Substance: ACETAMINOPHEN\TRAMADOL HYDROCHLORIDE
     Indication: PAIN
     Route: 065
  5. OXYCONTIN [Concomitant]
     Active Substance: OXYCODONE HYDROCHLORIDE
     Indication: PAIN
     Route: 065
  6. DUROGESIC [Suspect]
     Active Substance: FENTANYL
     Indication: PAIN
     Route: 062
     Dates: start: 201709

REACTIONS (15)
  - Blood pressure abnormal [Not Recovered/Not Resolved]
  - Hyperhidrosis [Recovering/Resolving]
  - Somnolence [Not Recovered/Not Resolved]
  - Withdrawal syndrome [Unknown]
  - Dependence [Recovering/Resolving]
  - Chest discomfort [Recovering/Resolving]
  - Dyspnoea [Recovering/Resolving]
  - Drug resistance [Unknown]
  - Abdominal discomfort [Unknown]
  - Chills [Recovering/Resolving]
  - Fatigue [Not Recovered/Not Resolved]
  - Abdominal distension [Unknown]
  - Nausea [Not Recovered/Not Resolved]
  - Feeling hot [Unknown]
  - Vomiting [Not Recovered/Not Resolved]
